FAERS Safety Report 9646711 (Version 1)
Quarter: 2013Q4

REPORT INFORMATION
  Report Type: Spontaneous
  Country: US (occurrence: US)
  Receive Date: 20131027
  Receipt Date: 20131027
  Transmission Date: 20140711
  Serious: Yes (Other)
  Sender: FDA-Public Use
  Company Number: US-NAPPMUNDI-USA-2013-0103916

PATIENT
  Age: 23 Year
  Sex: Male

DRUGS (5)
  1. OXYCONTIN TABLETS [Suspect]
     Indication: DRUG ABUSE
     Dosage: UNKNOWN
  2. MARIJUANA [Suspect]
     Indication: DRUG ABUSE
     Dosage: UNKNOWN
  3. ALCOHOL [Suspect]
     Indication: DRUG ABUSE
     Dosage: UNKNOWN
  4. VICODIN [Suspect]
     Indication: DRUG ABUSE
     Dosage: UNKNOWN
  5. NORCO [Suspect]
     Indication: DRUG ABUSE
     Dosage: UNKNOWN

REACTIONS (1)
  - Substance abuse [Unknown]
